FAERS Safety Report 8452049-X (Version None)
Quarter: 2012Q2

REPORT INFORMATION
  Report Type: 
  Country: None (occurrence: None)
  Receive Date: 20120620
  Receipt Date: 20120612
  Transmission Date: 20120825
  Serious: Yes (Other)
  Sender: FDA-Public Use
  Company Number: CA-ABBOTT-12P-028-0942199-00

PATIENT
  Sex: Female
  Weight: 63.56 kg

DRUGS (5)
  1. PREVACID [Concomitant]
     Indication: CROHN'S DISEASE
     Route: 048
     Dates: start: 20060101
  2. HUMIRA [Suspect]
     Dates: start: 20120616
  3. ALESSA [Concomitant]
     Indication: ORAL CONTRACEPTION
     Route: 048
     Dates: start: 20080101
  4. HUMIRA [Suspect]
     Indication: CROHN'S DISEASE
     Route: 058
     Dates: start: 20100202
  5. HUMIRA [Suspect]
     Indication: PRODUCT USED FOR UNKNOWN INDICATION
     Dates: end: 20120605

REACTIONS (2)
  - HERNIA [None]
  - PROCEDURAL PAIN [None]
